FAERS Safety Report 10155423 (Version 2)
Quarter: 2014Q2

REPORT INFORMATION
  Report Type: Report from Study
  Country: US (occurrence: US)
  Receive Date: 20140506
  Receipt Date: 20140606
  Transmission Date: 20141212
  Serious: Yes (Hospitalization)
  Sender: FDA-Public Use
  Company Number: US-IPSEN BIOPHARMACEUTICALS, INC.-2014-2159

PATIENT
  Age: 42 Year
  Sex: Female
  Weight: 60.6 kg

DRUGS (5)
  1. SOMATULINE DEPOT INJECTION (120MG) [Suspect]
     Indication: ACROMEGALY
     Dosage: 120 MG
     Route: 058
     Dates: start: 20120402
  2. SYNTHROID [Concomitant]
     Indication: PRODUCT USED FOR UNKNOWN INDICATION
     Route: 065
  3. BYETTA [Concomitant]
     Indication: PRODUCT USED FOR UNKNOWN INDICATION
     Route: 065
  4. METFORMIN [Concomitant]
     Indication: PRODUCT USED FOR UNKNOWN INDICATION
     Route: 065
  5. LANTUS [Concomitant]
     Indication: PRODUCT USED FOR UNKNOWN INDICATION
     Route: 065
     Dates: start: 20120501

REACTIONS (8)
  - Hip arthroplasty [Unknown]
  - Insulin-like growth factor increased [Not Recovered/Not Resolved]
  - Blood calcium decreased [Recovered/Resolved]
  - Vitamin D decreased [Recovered/Resolved]
  - Dehydration [Unknown]
  - Arthralgia [Recovered/Resolved]
  - Hypokinesia [Recovered/Resolved]
  - Injection site mass [Not Recovered/Not Resolved]
